FAERS Safety Report 19196106 (Version 3)
Quarter: 2021Q4

REPORT INFORMATION
  Report Type: Report from Study
  Country: KW (occurrence: KW)
  Receive Date: 20210429
  Receipt Date: 20211216
  Transmission Date: 20220303
  Serious: Yes (Death, Hospitalization, Other)
  Sender: FDA-Public Use
  Company Number: NVSC2021KW087745

PATIENT
  Age: 29 Year
  Sex: Female

DRUGS (3)
  1. VOTRIENT [Suspect]
     Active Substance: PAZOPANIB HYDROCHLORIDE
     Indication: Soft tissue sarcoma
     Dosage: 800 MG, QD
     Route: 048
     Dates: start: 20210131
  2. VOTRIENT [Suspect]
     Active Substance: PAZOPANIB HYDROCHLORIDE
     Dosage: 800 MG/KG, QD
     Route: 048
     Dates: start: 20210131
  3. VOTRIENT [Suspect]
     Active Substance: PAZOPANIB HYDROCHLORIDE
     Dosage: FIRST 3 DOSES WAS EFFECTIVE
     Route: 048
     Dates: start: 202104

REACTIONS (5)
  - Metastases to central nervous system [Fatal]
  - Metastases to neck [Fatal]
  - Pulmonary oedema [Recovering/Resolving]
  - Chest pain [Unknown]
  - Neoplasm [Unknown]

NARRATIVE: CASE EVENT DATE: 20210101
